FAERS Safety Report 8025459-2 (Version None)
Quarter: 2012Q1

REPORT INFORMATION
  Report Type: 
  Country: None (occurrence: None)
  Receive Date: 20120105
  Receipt Date: 20111228
  Transmission Date: 20120608
  Serious: Yes (Other)
  Sender: FDA-Public Use
  Company Number: RO-ABBOTT-11P-135-0887258-00

PATIENT
  Sex: Male
  Weight: 70 kg

DRUGS (11)
  1. TANAKAN [Concomitant]
     Indication: CEREBRAL ISCHAEMIA
     Route: 048
     Dates: start: 20090101
  2. AMLODIPINUM [Concomitant]
     Indication: HYPERTENSION
     Route: 048
  3. TRIMETAZIDINUM [Concomitant]
     Indication: MYOCARDIAL ISCHAEMIA
     Route: 048
     Dates: start: 20101029
  4. ALLOPURINOL [Concomitant]
     Indication: HYPERURICAEMIA
     Route: 048
     Dates: start: 20100701
  5. DIGOXIN [Concomitant]
     Indication: ATRIAL FIBRILLATION
     Dosage: 1/2 TABLET EVERY OTHER DAY
     Route: 048
     Dates: start: 20101029
  6. INDAPAMID [Concomitant]
     Indication: HYPERTENSION
     Route: 048
     Dates: start: 20101029
  7. TELMISARTAN [Concomitant]
     Indication: HYPERTENSION
     Route: 048
     Dates: start: 20101102
  8. TAMSULOSIN HYDROCHLORIDE [Concomitant]
     Indication: PROSTATIC ADENOMA
     Dates: start: 20080101
  9. PLAVIX [Concomitant]
     Indication: ARTERIOSCLEROSIS
     Route: 048
     Dates: start: 20080101
  10. ZEMPLAR [Suspect]
     Indication: HYPERPARATHYROIDISM SECONDARY
     Route: 048
     Dates: start: 20101110
  11. CARVEDILOL [Concomitant]
     Indication: HYPERTENSION
     Dosage: 12.5 MG PER DAY
     Route: 048
     Dates: start: 20080101

REACTIONS (1)
  - RENAL CANCER [None]
